FAERS Safety Report 5664232-7 (Version None)
Quarter: 2008Q1

REPORT INFORMATION
  Report Type: 
  Country: None (occurrence: None)
  Receive Date: 20080312
  Receipt Date: 20080303
  Transmission Date: 20080703
  Serious: Yes (Death)
  Sender: FDA-Public Use
  Company Number: 2007BI026932

PATIENT
  Age: 63 Year
  Sex: Female

DRUGS (1)
  1. AVONEX [Suspect]
     Indication: MULTIPLE SCLEROSIS
     Dosage: 30 UG; QW; IM
     Route: 030
     Dates: start: 20041129, end: 20071201

REACTIONS (4)
  - DECUBITUS ULCER [None]
  - DISEASE COMPLICATION [None]
  - MULTIPLE SCLEROSIS [None]
  - RESPIRATORY FAILURE [None]
